FAERS Safety Report 17719898 (Version 1)
Quarter: 2020Q2

REPORT INFORMATION
  Report Type: Spontaneous
  Country: CN (occurrence: CN)
  Receive Date: 20200428
  Receipt Date: 20200428
  Transmission Date: 20200714
  Serious: Yes (Other)
  Sender: FDA-Public Use
  Company Number: CN-JNJFOC-20200432572

PATIENT
  Age: 86 Year
  Sex: Female
  Weight: 51 kg

DRUGS (2)
  1. ASPRIN [Suspect]
     Active Substance: ASPIRIN
     Indication: ANTICOAGULANT THERAPY
     Dosage: 0.1 G, QD
     Route: 048
     Dates: start: 20200210, end: 20200211
  2. RIVAROXABAN [Suspect]
     Active Substance: RIVAROXABAN
     Indication: ANTICOAGULANT THERAPY
     Dosage: 10 MG, QD
     Route: 048
     Dates: start: 20200218, end: 20200223

REACTIONS (6)
  - Off label use [Unknown]
  - Contraindicated product administered [Unknown]
  - Bladder irritation [Recovering/Resolving]
  - Labelled drug-drug interaction medication error [Unknown]
  - Haemorrhage urinary tract [Recovering/Resolving]
  - Haematuria [Recovering/Resolving]

NARRATIVE: CASE EVENT DATE: 20200218
